FAERS Safety Report 9133312 (Version 4)
Quarter: 2013Q4

REPORT INFORMATION
  Report Type: Spontaneous
  Country: CN (occurrence: CN)
  Receive Date: 20130301
  Receipt Date: 20131017
  Transmission Date: 20140711
  Serious: Yes (Other)
  Sender: FDA-Public Use
  Company Number: CN-GILEAD-2013-0071019

PATIENT
  Sex: Female

DRUGS (1)
  1. HEPSERA [Suspect]
     Indication: CHRONIC HEPATITIS B
     Dosage: 10MG PER DAY
     Route: 048
     Dates: start: 20130125, end: 20130222

REACTIONS (11)
  - Alanine aminotransferase increased [Not Recovered/Not Resolved]
  - Thyroid function test abnormal [Not Recovered/Not Resolved]
  - Back pain [Recovering/Resolving]
  - Hepatic pain [Recovering/Resolving]
  - Abdominal distension [Recovering/Resolving]
  - Pruritus generalised [Recovering/Resolving]
  - Malaise [Unknown]
  - Gastric ulcer [Unknown]
  - Nausea [Recovering/Resolving]
  - Renal impairment [Not Recovered/Not Resolved]
  - Hepatitis B DNA increased [Not Recovered/Not Resolved]
